FAERS Safety Report 22872003 (Version 3)
Quarter: 2023Q4

REPORT INFORMATION
  Report Type: Report from Study
  Country: FR (occurrence: FR)
  Receive Date: 20230828
  Receipt Date: 20231031
  Transmission Date: 20240110
  Serious: Yes (Other)
  Sender: FDA-Public Use
  Company Number: FR-INSMED, INC.-2023-00895-FR

PATIENT

DRUGS (5)
  1. ARIKAYCE [Suspect]
     Active Substance: AMIKACIN
     Indication: Mycobacterium avium complex infection
     Dosage: 590 MILLIGRAM, QD
     Route: 055
     Dates: start: 2023
  2. ETHAMBUTOL [Suspect]
     Active Substance: ETHAMBUTOL HYDROCHLORIDE
     Indication: Product used for unknown indication
     Route: 065
  3. RIFAMPIN [Concomitant]
     Active Substance: RIFAMPIN
     Indication: Product used for unknown indication
     Dosage: UNK
     Route: 048
  4. AZITHROMYCIN [Concomitant]
     Active Substance: AZITHROMYCIN
     Indication: Product used for unknown indication
     Dosage: UNK
     Route: 048
  5. RIFAMPIN SODIUM [Concomitant]
     Active Substance: RIFAMPIN SODIUM
     Indication: Atypical mycobacterial infection
     Dosage: UNK
     Route: 065

REACTIONS (28)
  - Respiratory tract infection fungal [Not Recovered/Not Resolved]
  - Parkinsonism [Unknown]
  - Cataract [Unknown]
  - Liver disorder [Unknown]
  - Eating disorder [Not Recovered/Not Resolved]
  - Limb injury [Unknown]
  - Gait disturbance [Unknown]
  - Lethargy [Unknown]
  - Sense of oppression [Recovering/Resolving]
  - Anorectal discomfort [Recovering/Resolving]
  - Faeces soft [Not Recovered/Not Resolved]
  - Onychomycosis [Not Recovered/Not Resolved]
  - Gastrointestinal disorder [Not Recovered/Not Resolved]
  - Abdominal pain [Not Recovered/Not Resolved]
  - Sputum discoloured [Recovering/Resolving]
  - Decreased appetite [Not Recovered/Not Resolved]
  - Productive cough [Recovering/Resolving]
  - Dysgeusia [Not Recovered/Not Resolved]
  - Fatigue [Recovering/Resolving]
  - Oropharyngeal pain [Recovering/Resolving]
  - Nausea [Not Recovered/Not Resolved]
  - Diarrhoea [Not Recovered/Not Resolved]
  - Dizziness [Recovered/Resolved]
  - Cough [Not Recovered/Not Resolved]
  - Asthenia [Unknown]
  - Malaise [Not Recovered/Not Resolved]
  - Adverse drug reaction [Unknown]
  - Dyspnoea [Recovering/Resolving]

NARRATIVE: CASE EVENT DATE: 20230101
